FAERS Safety Report 4566961-5 (Version None)
Quarter: 2005Q1

REPORT INFORMATION
  Report Type: 
  Country: None (occurrence: None)
  Receive Date: 20050201
  Receipt Date: 20030521
  Transmission Date: 20050727
  Serious: Yes (Other)
  Sender: FDA-Public Use
  Company Number: US-BRISTOL-MYERS SQUIBB COMPANY-12282612

PATIENT
  Age: 28 Year
  Sex: Female

DRUGS (1)
  1. STADOL [Suspect]
     Dosage: DURATION: LESS THAN 1 YEAR
     Route: 045
     Dates: start: 19950101, end: 19960901

REACTIONS (2)
  - DEPENDENCE [None]
  - PALPITATIONS [None]
